FAERS Safety Report 9468137 (Version 2)
Quarter: 2013Q3

REPORT INFORMATION
  Report Type: Spontaneous
  Country: US (occurrence: US)
  Receive Date: 20130821
  Receipt Date: 20130909
  Transmission Date: 20140515
  Serious: Yes (Other)
  Sender: FDA-Public Use
  Company Number: US-PFIZER INC-2013240891

PATIENT
  Age: 70 Year
  Sex: Male
  Weight: 70.3 kg

DRUGS (10)
  1. SKELAXIN [Suspect]
     Indication: MUSCLE SPASMS
     Dosage: 800 MG, 2X/DAY
  2. SINEMET [Suspect]
     Indication: PARKINSON^S DISEASE
     Dosage: CARBIDOPA 75 MG /LEVODOPA 300 MG, EVERY 4 HRS
     Route: 048
  3. COREG [Concomitant]
     Indication: CARDIOMYOPATHY
     Dosage: 6.2 MG, UNK
  4. LISINOPRIL [Concomitant]
     Indication: HYPERTENSION
     Dosage: 10 MG, UNK
  5. SIMVASTATIN [Concomitant]
     Dosage: 20 MG, UNK
  6. DIGOXIN [Concomitant]
     Indication: CARDIAC DISORDER
     Dosage: 0.25 MG, UNK
  7. COMTAN [Concomitant]
     Indication: PARKINSON^S DISEASE
     Dosage: 200 MG, UNK
  8. ASPIRIN [Concomitant]
     Dosage: UNK
  9. VITAMIN D3 [Concomitant]
     Dosage: UNK
  10. VITAMIN E [Concomitant]
     Dosage: UNK

REACTIONS (5)
  - Leukaemia [Unknown]
  - Muscle spasms [Unknown]
  - Local swelling [Unknown]
  - Joint dislocation [Unknown]
  - Night sweats [Unknown]
